FAERS Safety Report 7493998-9 (Version None)
Quarter: 2011Q2

REPORT INFORMATION
  Report Type: 
  Country: None (occurrence: None)
  Receive Date: 20110519
  Receipt Date: 20110519
  Transmission Date: 20111010
  Serious: Yes (Life-Threatening, Other)
  Sender: FDA-Public Use
  Company Number: None

PATIENT
  Sex: Female

DRUGS (1)
  1. INSULIN [Suspect]
     Dates: start: 20110405

REACTIONS (4)
  - PRODUCT QUALITY ISSUE [None]
  - LOSS OF EMPLOYMENT [None]
  - DRUG INEFFECTIVE [None]
  - ECONOMIC PROBLEM [None]
